FAERS Safety Report 9262755 (Version 2)
Quarter: 2013Q3

REPORT INFORMATION
  Report Type: Report from Study
  Country: JP (occurrence: JP)
  Receive Date: 20130430
  Receipt Date: 20130804
  Transmission Date: 20140515
  Serious: Yes (Other)
  Sender: FDA-Public Use
  Company Number: PHHY2013JP040997

PATIENT
  Age: 64 Year
  Sex: Female
  Weight: 45 kg

DRUGS (5)
  1. CERTICAN [Suspect]
     Indication: RENAL TRANSPLANT
     Dosage: 1.5 MG, DAILY
     Route: 048
     Dates: start: 20121016, end: 20130414
  2. NEORAL [Concomitant]
     Indication: RENAL TRANSPLANT
     Dosage: 150 MG, UNK
     Route: 048
  3. MEDROL [Concomitant]
     Indication: RENAL TRANSPLANT
     Dosage: 4 MG, UNK
     Route: 048
  4. CELLCEPT [Concomitant]
     Indication: RENAL TRANSPLANT
     Dosage: 500 MG, UNK
     Route: 048
     Dates: start: 20130222
  5. AMLODIN [Concomitant]

REACTIONS (3)
  - Kidney transplant rejection [Not Recovered/Not Resolved]
  - Hepatic function abnormal [Recovered/Resolved]
  - Hyperlipidaemia [Recovered/Resolved]
